FAERS Safety Report 17909596 (Version 2)
Quarter: 2021Q1

REPORT INFORMATION
  Report Type: Other
  Country: ES (occurrence: ES)
  Receive Date: 20200618
  Receipt Date: 20210322
  Transmission Date: 20210419
  Serious: Yes (Hospitalization)
  Sender: FDA-Public Use
  Company Number: ES-CELLTRION INC.-2020ES023316

PATIENT

DRUGS (3)
  1. BENDAMUSTINE [Interacting]
     Active Substance: BENDAMUSTINE
     Indication: DIFFUSE LARGE B-CELL LYMPHOMA
     Dosage: 90 MG/M2, WITH 21 DAYS INTERVAL
     Route: 042
     Dates: start: 20190923, end: 20191014
  2. RITUXIMAB (UNKNOWN) [Suspect]
     Active Substance: RITUXIMAB
     Indication: DIFFUSE LARGE B-CELL LYMPHOMA
     Dosage: 375 MG/M2, INFUSION, SOLUTION WITH INTERVAL OF 21 DAYS
     Route: 042
     Dates: start: 20190923, end: 20191014
  3. POLATUZUMAB VEDOTIN. [Interacting]
     Active Substance: POLATUZUMAB VEDOTIN
     Indication: DIFFUSE LARGE B-CELL LYMPHOMA
     Dosage: 1.8 MG/KG, WITH 21 DAYS INTERVAL
     Route: 042
     Dates: start: 20190923, end: 20191014

REACTIONS (7)
  - Drug interaction [Unknown]
  - Mucosal inflammation [Recovered/Resolved]
  - Mucosal infection [Recovered/Resolved]
  - Fungal infection [Recovered/Resolved]
  - Bacterial infection [Recovered/Resolved]
  - Herpes virus infection [Recovered/Resolved]
  - Pancytopenia [Recovered/Resolved]

NARRATIVE: CASE EVENT DATE: 20191002
